FAERS Safety Report 6375544-6 (Version None)
Quarter: 2009Q3

REPORT INFORMATION
  Report Type: 
  Country: None (occurrence: None)
  Receive Date: 20090917
  Receipt Date: 20090917
  Transmission Date: 20100115
  Serious: Yes (Other)
  Sender: FDA-Public Use
  Company Number: None

PATIENT
  Sex: Female

DRUGS (5)
  1. SEROQUEL [Suspect]
     Dosage: 200MG DAILY TO BID PO
     Route: 048
     Dates: start: 20090318, end: 20090916
  2. CITALOPRAM [Concomitant]
  3. FAMOTIDINE [Concomitant]
  4. DIVALPROEX SODIUM [Concomitant]
  5. EPITOL [Concomitant]

REACTIONS (4)
  - CHEST PAIN [None]
  - CONVULSION [None]
  - EPISTAXIS [None]
  - MIGRAINE [None]
